FAERS Safety Report 17605778 (Version 1)
Quarter: 2020Q1

REPORT INFORMATION
  Report Type: Spontaneous
  Country: US (occurrence: US)
  Receive Date: 20200331
  Receipt Date: 20200331
  Transmission Date: 20200409
  Serious: Yes (Other)
  Sender: FDA-Public Use
  Company Number: US-TEVA-2020-US-1213955

PATIENT
  Age: 29 Year
  Sex: Female

DRUGS (5)
  1. CLOBETASOL [Concomitant]
     Active Substance: CLOBETASOL
     Indication: NECROBIOSIS LIPOIDICA DIABETICORUM
     Dosage: O.CCLUSION WRAPS
     Route: 061
  2. TRIAMCINOLONE [Suspect]
     Active Substance: TRIAMCINOLONE
     Indication: NECROBIOSIS LIPOIDICA DIABETICORUM
     Route: 026
  3. PENTOXIFYLLINE. [Suspect]
     Active Substance: PENTOXIFYLLINE
     Indication: NECROBIOSIS LIPOIDICA DIABETICORUM
     Route: 065
  4. HYDROXYCHLOROQUINE [Concomitant]
     Active Substance: HYDROXYCHLOROQUINE
     Indication: NECROBIOSIS LIPOIDICA DIABETICORUM
     Route: 065
  5. ADALIMUMAB [Suspect]
     Active Substance: ADALIMUMAB
     Indication: NECROBIOSIS LIPOIDICA DIABETICORUM
     Route: 065

REACTIONS (4)
  - Gastrointestinal disorder [Unknown]
  - Injection site urticaria [Unknown]
  - Injection site rash [Unknown]
  - Pseudomonas infection [Recovered/Resolved]
